FAERS Safety Report 5793380-6 (Version None)
Quarter: 2008Q2

REPORT INFORMATION
  Report Type: 
  Country: None (occurrence: None)
  Receive Date: 20080627
  Receipt Date: 20080618
  Transmission Date: 20081010
  Serious: Yes (Hospitalization, Other)
  Sender: FDA-Public Use
  Company Number: JP-ROCHE-559340

PATIENT
  Sex: Male

DRUGS (9)
  1. CEFTRIAXONE [Suspect]
     Indication: LUNG SQUAMOUS CELL CARCINOMA STAGE UNSPECIFIED
     Route: 042
     Dates: end: 20080402
  2. ERLOTINIB [Suspect]
     Route: 048
     Dates: start: 20080321, end: 20080402
  3. LOXONIN [Concomitant]
     Route: 048
  4. FAMOTIDINE [Concomitant]
     Route: 048
  5. LENDORMIN [Concomitant]
     Route: 048
  6. FUNGIZONE [Concomitant]
     Route: 048
  7. DECADRON [Concomitant]
     Route: 042
  8. RISPERDAL [Concomitant]
     Route: 048
     Dates: start: 20080322
  9. GRAMALIL [Concomitant]
     Route: 048
     Dates: start: 20080322

REACTIONS (5)
  - ERYTHEMA MULTIFORME [None]
  - HEPATIC FUNCTION ABNORMAL [None]
  - LIP EROSION [None]
  - LIP SWELLING [None]
  - PYREXIA [None]
